FAERS Safety Report 8169206-2 (Version None)
Quarter: 2012Q1

REPORT INFORMATION
  Report Type: 
  Country: None (occurrence: None)
  Receive Date: 20120227
  Receipt Date: 20120216
  Transmission Date: 20120608
  Serious: Yes (Hospitalization, Other)
  Sender: FDA-Public Use
  Company Number: BR-ASTRAZENECA-2011SE52989

PATIENT
  Age: 76 Year
  Sex: Male
  Weight: 72 kg

DRUGS (5)
  1. BRILINTA [Suspect]
     Indication: CARDIOVASCULAR EVENT PROPHYLAXIS
     Route: 048
     Dates: start: 20110701
  2. NASONEX [Concomitant]
     Indication: RHINITIS
     Route: 045
  3. ATACAND [Suspect]
     Route: 048
     Dates: start: 20110901, end: 20111001
  4. ATACAND [Suspect]
     Indication: HYPERTENSION
     Route: 048
     Dates: start: 20090101, end: 20110901
  5. ATACAND [Suspect]
     Route: 048
     Dates: start: 20111001

REACTIONS (14)
  - HEART RATE INCREASED [None]
  - DEHYDRATION [None]
  - ARTERIAL INJURY [None]
  - OEDEMA [None]
  - BLOOD PRESSURE DECREASED [None]
  - ATRIAL FIBRILLATION [None]
  - OFF LABEL USE [None]
  - GOUT [None]
  - HYPERTHYROIDISM [None]
  - INFLUENZA [None]
  - ARTERIAL OCCLUSIVE DISEASE [None]
  - ACUTE PULMONARY OEDEMA [None]
  - GASTROINTESTINAL INFECTION [None]
  - DYSPNOEA [None]
